FAERS Safety Report 7677547-8 (Version None)
Quarter: 2011Q3

REPORT INFORMATION
  Report Type: 
  Country: None (occurrence: None)
  Receive Date: 20110811
  Receipt Date: 20110801
  Transmission Date: 20111222
  Serious: Yes (Hospitalization)
  Sender: FDA-Public Use
  Company Number: US-JNJFOC-20071006375

PATIENT
  Sex: Male
  Weight: 70 kg

DRUGS (1)
  1. INFLIXIMAB, RECOMBINANT [Suspect]
     Indication: COLITIS ULCERATIVE
     Route: 042
     Dates: start: 20070327, end: 20070502

REACTIONS (2)
  - ANASTOMOTIC COMPLICATION [None]
  - GASTROINTESTINAL INFLAMMATION [None]
